FAERS Safety Report 17015009 (Version 1)
Quarter: 2019Q4

REPORT INFORMATION
  Report Type: Spontaneous
  Country: ES (occurrence: ES)
  Receive Date: 20191111
  Receipt Date: 20191111
  Transmission Date: 20200122
  Serious: Yes (Hospitalization)
  Sender: FDA-Public Use
  Company Number: ES-TEVA-2019-ES-1135771

PATIENT
  Age: 74 Year
  Sex: Female

DRUGS (6)
  1. AZTREONAM. [Suspect]
     Active Substance: AZTREONAM
     Indication: ABDOMINAL SEPSIS
     Dosage: 2 GRAM PER 8 HOURS
     Route: 042
     Dates: start: 20140327, end: 20140401
  2. VANCOMICINA [Suspect]
     Active Substance: VANCOMYCIN
     Indication: ABDOMINAL SEPSIS
     Dosage: 1 GRAM PER 12 HOURS
     Route: 042
     Dates: start: 20140327, end: 20140329
  3. PANTOPRAZOL [Concomitant]
     Active Substance: PANTOPRAZOLE SODIUM
     Indication: PROPHYLAXIS AGAINST GASTROINTESTINAL ULCER
     Dosage: 40 MG UNIT DOSAGE FREQUENCY: 40 MG-MILLIGRAMS DOSAGEPER: 40 MG-MILLIGRAMS NO SHOTS PER UNIT OF FREQU
     Route: 042
     Dates: start: 20140327
  4. ENOXAPARINA [Concomitant]
     Active Substance: ENOXAPARIN
     Indication: THROMBOSIS PROPHYLAXIS
     Dosage: 40 MG UNIT DOSAGE FREQUENCY: 40 MG-MILLIGRAMS DOSAGEPER: 40 MG-MILLIGRAMS NO SHOTS PER UNIT OF FREQU
     Route: 058
     Dates: start: 20140327
  5. METRONIDAZOL [Suspect]
     Active Substance: METRONIDAZOLE
     Indication: ABDOMINAL SEPSIS
     Dosage: 500 MG PER  8 HOURS
     Route: 042
     Dates: start: 20140327, end: 20140401
  6. PARACETAMOL [Concomitant]
     Active Substance: ACETAMINOPHEN
     Indication: PAIN
     Dosage: 1GR/8H UNIT DOSAGE FREQUENCY: 3 G-GRAMS DOSAGEPER: 1 G-GRAMS NO SHOTS PER UNIT FREQUENCY: 3 FREQUENC
     Route: 042
     Dates: start: 20140327

REACTIONS (1)
  - Acute generalised exanthematous pustulosis [Recovered/Resolved]

NARRATIVE: CASE EVENT DATE: 20140329
